FAERS Safety Report 20138250 (Version 1)
Quarter: 2021Q4

REPORT INFORMATION
  Report Type: Spontaneous
  Country: US (occurrence: US)
  Receive Date: 20211202
  Receipt Date: 20211202
  Transmission Date: 20220304
  Serious: Yes (Death, Hospitalization)
  Sender: FDA-Public Use
  Company Number: US-JNJFOC-20211148147

PATIENT
  Age: 38 Year
  Sex: Male
  Weight: 112 kg

DRUGS (4)
  1. TYLENOL EXTRA STRENGTH [Suspect]
     Active Substance: ACETAMINOPHEN
     Indication: Headache
     Dosage: ACETAMINOPHEN 500 MG TOTAL DAILY DOSE 6000 MG FOR 3 DAYS (TOTAL DOSE 18000 MG)
     Route: 048
     Dates: start: 20020308, end: 20020310
  2. SYNTHROID [Concomitant]
     Active Substance: LEVOTHYROXINE SODIUM
     Indication: Product used for unknown indication
     Dosage: FOR 36 MONTHS
     Route: 065
     Dates: end: 20020201
  3. PRILOSEC [Concomitant]
     Active Substance: OMEPRAZOLE MAGNESIUM
     Indication: Product used for unknown indication
     Dosage: TOTAL DAILY DOSE 20 MG FOR 24 MONTHS
     Route: 065
     Dates: end: 20011101
  4. TUMS [Concomitant]
     Active Substance: CALCIUM CARBONATE
     Indication: Product used for unknown indication
     Dosage: TOTAL DOSE 1000 MG FOR 4 MONTHS
     Route: 065
     Dates: end: 20020309

REACTIONS (6)
  - Accidental overdose [Fatal]
  - Brain oedema [Fatal]
  - Acute hepatic failure [Fatal]
  - Atrial fibrillation [Fatal]
  - Acute kidney injury [Fatal]
  - Chest X-ray abnormal [Fatal]

NARRATIVE: CASE EVENT DATE: 20020314
